FAERS Safety Report 16083470 (Version 4)
Quarter: 2022Q1

REPORT INFORMATION
  Report Type: Spontaneous
  Country: FR (occurrence: FR)
  Receive Date: 20190318
  Receipt Date: 20220221
  Transmission Date: 20220423
  Serious: Yes (Other)
  Sender: FDA-Public Use
  Company Number: FR-TEVA-2019-FR-1026334

PATIENT
  Age: 4 Day
  Sex: Male

DRUGS (12)
  1. DOXORUBICIN [Suspect]
     Active Substance: DOXORUBICIN
     Indication: Hodgkin^s disease
     Dosage: PART OF THE ABVD CHEMOTHERAPY; DAY 1 AND 15 OF 28 DAY CYCLE (25 MG/M2)
     Route: 064
  2. AMOXICILLIN [Suspect]
     Active Substance: AMOXICILLIN
     Indication: Maternal therapy to enhance foetal lung maturity
     Route: 064
  3. BLEOMYCIN [Suspect]
     Active Substance: BLEOMYCIN SULFATE
     Indication: Hodgkin^s disease
     Dosage: PART OF THE ABVD CHEMOTHERAPY; DAY 1 AND 15 OF 28 DAY CYCLE (10 MG/M2)
     Route: 064
  4. VINBLASTINE [Suspect]
     Active Substance: VINBLASTINE
     Indication: Hodgkin^s disease
     Dosage: PART OF THE ABVD CHEMOTHERAPY; DAY 1 AND 15 OF 28 DAY CYCLE (5 MG/M2)
     Route: 064
  5. DACARBAZINE [Suspect]
     Active Substance: DACARBAZINE
     Indication: Hodgkin^s disease
     Dosage: PART OF THE ABVD CHEMOTHERAPY; DAY 1 AND 15 OF 28 DAY CYCLE (375 MG/M2 OVER 45 MINUTES)
     Route: 064
  6. ONDANSETRON [Suspect]
     Active Substance: ONDANSETRON
     Indication: Prophylaxis of nausea and vomiting
     Dosage: 16 MILLIGRAM DAILY;
     Route: 064
  7. DEXAMETHASONE [Suspect]
     Active Substance: DEXAMETHASONE
     Dosage: 10MG ON DAY 1 AND DAY 15 OF A 28 DAY CYCLE
     Route: 064
  8. PREDNISONE [Suspect]
     Active Substance: PREDNISONE
     Dosage: 80 MILLIGRAM DAILY;
     Route: 064
  9. PREDNISONE [Suspect]
     Active Substance: PREDNISONE
     Dosage: 40 MILLIGRAM DAILY;
     Route: 064
  10. ENOXAPARIN SODIUM [Suspect]
     Active Substance: ENOXAPARIN SODIUM
     Dosage: 8000 IU (INTERNATIONAL UNIT) DAILY;
     Route: 064
  11. LANSOPRAZOLE [Suspect]
     Active Substance: LANSOPRAZOLE
     Dosage: 30 MILLIGRAM DAILY;
     Route: 064
  12. VALACYCLOVIR HYDROCHLORIDE [Suspect]
     Active Substance: VALACYCLOVIR HYDROCHLORIDE
     Dosage: 500 MILLIGRAM DAILY;
     Route: 064

REACTIONS (2)
  - Cardiac failure [Recovering/Resolving]
  - Foetal exposure during pregnancy [Unknown]
